FAERS Safety Report 15266939 (Version 1)
Quarter: 2018Q3

REPORT INFORMATION
  Report Type: Spontaneous
  Country: TH (occurrence: TH)
  Receive Date: 20180810
  Receipt Date: 20180810
  Transmission Date: 20181010
  Serious: Yes (Hospitalization, Other)
  Sender: FDA-Public Use
  Company Number: PHHY2018TH068949

PATIENT
  Age: 52 Year
  Sex: Male

DRUGS (19)
  1. MYCOPHENOLATE SODIUM [Suspect]
     Active Substance: MYCOPHENOLATE SODIUM
     Dosage: 180 MG, TID
     Route: 065
     Dates: start: 20141021
  2. EVEROLIMUS. [Suspect]
     Active Substance: EVEROLIMUS
     Dosage: UNK (0.75/1)
     Route: 065
     Dates: start: 20141028
  3. EVEROLIMUS. [Suspect]
     Active Substance: EVEROLIMUS
     Dosage: 1.75 MG, QD (0.75 MG AT 7 AM AND 1 MG AT 7 PM)
     Route: 065
     Dates: start: 20141104
  4. PREDNISOLONE. [Suspect]
     Active Substance: PREDNISOLONE
     Dosage: UNK (1X1 PC)
     Route: 065
     Dates: start: 20141024
  5. EVEROLIMUS. [Suspect]
     Active Substance: EVEROLIMUS
     Indication: RENAL TRANSPLANT
     Dosage: UNK
     Route: 065
  6. TACROLIMUS. [Suspect]
     Active Substance: TACROLIMUS
     Dosage: UNK (2/1.5 TO 1/1)
     Route: 065
     Dates: start: 20141021
  7. PREDNISOLONE. [Suspect]
     Active Substance: PREDNISOLONE
     Dosage: UNK (1X1 PC)
     Route: 065
     Dates: start: 20140930
  8. EVEROLIMUS. [Suspect]
     Active Substance: EVEROLIMUS
     Dosage: UNK
     Route: 065
     Dates: start: 20140930
  9. MYCOPHENOLATE SODIUM [Suspect]
     Active Substance: MYCOPHENOLATE SODIUM
     Dosage: UNK (360/360)
     Route: 065
     Dates: start: 20140930
  10. PREDNISOLONE. [Suspect]
     Active Substance: PREDNISOLONE
     Indication: RENAL TRANSPLANT
     Dosage: 1 DF, QD
     Route: 065
  11. EVEROLIMUS. [Suspect]
     Active Substance: EVEROLIMUS
     Dosage: UNK (0.75/0.75)
     Route: 065
     Dates: start: 20141021
  12. MYCOPHENOLATE SODIUM [Suspect]
     Active Substance: MYCOPHENOLATE SODIUM
     Indication: RENAL TRANSPLANT
     Dosage: 1 DF, BID
     Route: 065
  13. MYCOPHENOLATE SODIUM [Suspect]
     Active Substance: MYCOPHENOLATE SODIUM
     Dosage: 180 MG, TID
     Route: 065
     Dates: start: 20141104
  14. PREDNISOLONE. [Suspect]
     Active Substance: PREDNISOLONE
     Dosage: UNK (1X1 PC)
     Route: 065
     Dates: start: 20141021
  15. PREDNISOLONE. [Suspect]
     Active Substance: PREDNISOLONE
     Dosage: UNK (1X1 PC)
     Route: 065
     Dates: start: 20141104
  16. EVEROLIMUS. [Suspect]
     Active Substance: EVEROLIMUS
     Dosage: UNK (0.75/1)
     Route: 065
     Dates: start: 20141024
  17. MYCOPHENOLATE SODIUM [Suspect]
     Active Substance: MYCOPHENOLATE SODIUM
     Dosage: 180 MG, TID
     Route: 065
     Dates: start: 20141028
  18. TACROLIMUS. [Suspect]
     Active Substance: TACROLIMUS
     Indication: RENAL TRANSPLANT
     Dosage: 4 MG, QD (2 MG AT 7 AM AND 2 MG AT 7 PM)
     Route: 065
  19. TACROLIMUS. [Suspect]
     Active Substance: TACROLIMUS
     Dosage: UNK (2/2 TO 2/1.5)
     Route: 065
     Dates: start: 20140930

REACTIONS (9)
  - Blood creatinine increased [Unknown]
  - Renal mass [Unknown]
  - Mouth ulceration [Not Recovered/Not Resolved]
  - Rash generalised [Not Recovered/Not Resolved]
  - Drug reaction with eosinophilia and systemic symptoms [Unknown]
  - Pyrexia [Unknown]
  - Mucosal inflammation [Unknown]
  - Eosinophil count increased [Unknown]
  - Stomatitis [Unknown]

NARRATIVE: CASE EVENT DATE: 20140930
